FAERS Safety Report 24073561 (Version 1)
Quarter: 2024Q3

REPORT INFORMATION
  Report Type: Spontaneous
  Country: US (occurrence: US)
  Receive Date: 20240710
  Receipt Date: 20240710
  Transmission Date: 20241017
  Serious: No
  Sender: TEVA
  Company Number: US-TEVA-VS-3217454

PATIENT
  Age: 27 Year
  Sex: Male

DRUGS (2)
  1. UZEDY [Suspect]
     Active Substance: RISPERIDONE
     Indication: Bipolar disorder
     Dosage: 125/0.35 MG/ML
     Route: 058
     Dates: start: 20240701
  2. UZEDY [Suspect]
     Active Substance: RISPERIDONE
     Indication: Mania

REACTIONS (5)
  - Increased appetite [Unknown]
  - Off label use [Unknown]
  - Asthenia [Unknown]
  - Food craving [Unknown]
  - Somnolence [Unknown]

NARRATIVE: CASE EVENT DATE: 20240701
